FAERS Safety Report 12140428 (Version 2)
Quarter: 2016Q1

REPORT INFORMATION
  Report Type: Spontaneous
  Country: IT (occurrence: IT)
  Receive Date: 20160303
  Receipt Date: 20160317
  Transmission Date: 20160526
  Serious: Yes (Other)
  Sender: FDA-Public Use
  Company Number: IT-TEVA-638926ACC

PATIENT
  Age: 75 Year
  Sex: Female

DRUGS (2)
  1. GABAPENTIN TEVA PHARMA [Suspect]
     Active Substance: GABAPENTIN
     Indication: OSTEOARTHRITIS
  2. QUETIAPINA [Concomitant]
     Active Substance: QUETIAPINE

REACTIONS (5)
  - Abdominal distension [Not Recovered/Not Resolved]
  - Urinary retention [Not Recovered/Not Resolved]
  - Vision blurred [Not Recovered/Not Resolved]
  - Arthralgia [Not Recovered/Not Resolved]
  - Back pain [Not Recovered/Not Resolved]
